FAERS Safety Report 7293053-7 (Version None)
Quarter: 2011Q1

REPORT INFORMATION
  Report Type: 
  Country: None (occurrence: None)
  Receive Date: 20110215
  Receipt Date: 20110201
  Transmission Date: 20110831
  Serious: Yes (Other)
  Sender: FDA-Public Use
  Company Number: US-ROCHE-741931

PATIENT
  Age: 37 Year
  Sex: Female

DRUGS (3)
  1. TAXOL [Suspect]
     Route: 065
  2. BEVACIZUMAB [Suspect]
     Dosage: DISCONTINUED.
     Route: 042
  3. FEMARA [Concomitant]

REACTIONS (1)
  - WOUND DEHISCENCE [None]
